FAERS Safety Report 13333859 (Version 1)
Quarter: 2017Q1

REPORT INFORMATION
  Report Type: Spontaneous
  Country: BR (occurrence: BR)
  Receive Date: 20170314
  Receipt Date: 20170314
  Transmission Date: 20170428
  Serious: Yes (Other)
  Sender: FDA-Public Use
  Company Number: BR-009507513-1703BRA005968

PATIENT
  Sex: Female

DRUGS (6)
  1. VANCOMYCIN [Concomitant]
     Active Substance: VANCOMYCIN
  2. CEFTAROLINE FOSAMIL ACETATE [Concomitant]
     Active Substance: CEFTAROLINE FOSAMIL
  3. MEROPENEM. [Concomitant]
     Active Substance: MEROPENEM
  4. TEICOPLANIN [Concomitant]
     Active Substance: TEICOPLANIN
  5. DAPTOMYCIN. [Suspect]
     Active Substance: DAPTOMYCIN
     Indication: PRODUCT USED FOR UNKNOWN INDICATION
     Dosage: 5 DF, UNKNOWN
     Route: 042
  6. ERTAPENEM SODIUM [Concomitant]
     Active Substance: ERTAPENEM SODIUM

REACTIONS (2)
  - Skin discolouration [Unknown]
  - Lymphadenitis bacterial [Unknown]
